FAERS Safety Report 8839730 (Version 4)
Quarter: 2012Q4

REPORT INFORMATION
  Report Type: Report from Study
  Country: JP (occurrence: JP)
  Receive Date: 20121015
  Receipt Date: 20121218
  Transmission Date: 20130627
  Serious: Yes (Life-Threatening, Hospitalization, Other)
  Sender: FDA-Public Use
  Company Number: JP-BRISTOL-MYERS SQUIBB COMPANY-17023664

PATIENT
  Age: 52 Year
  Sex: Male
  Weight: 61 kg

DRUGS (4)
  1. ABILIFY TABS [Suspect]
     Indication: SCHIZOPHRENIA
     Dosage: tabs
     Route: 048
     Dates: start: 20120924, end: 20120924
  2. ZYPREXA [Suspect]
     Indication: SCHIZOPHRENIA
     Dosage: tabs,3Jul-27Aug12:15mg;28Aug-11Sep12:10mg,12Sep12-30sep12:7.5mg;01-Oct-12onwards:5mg
     Route: 048
     Dates: start: 20120703
  3. RISPERIDONE [Suspect]
     Indication: SCHIZOPHRENIA
     Dosage: tabs,3Jul-27Aug12:1mg,28Aug-30Sep12:2mg,01Octonwards:3mg
     Route: 048
     Dates: start: 20120703
  4. TETRAMIDE [Concomitant]
     Dosage: tabs
     Dates: start: 20100420

REACTIONS (2)
  - Suicide attempt [Not Recovered/Not Resolved]
  - Schizophrenia [Not Recovered/Not Resolved]
